FAERS Safety Report 18695282 (Version 1)
Quarter: 2021Q1

REPORT INFORMATION
  Report Type: Spontaneous
  Country: US (occurrence: US)
  Receive Date: 20210102
  Receipt Date: 20210102
  Transmission Date: 20210419
  Serious: Yes (Hospitalization, Disabling, Other)
  Sender: FDA-Public Use
  Company Number: None

PATIENT
  Age: 31 Year
  Sex: Male
  Weight: 67.5 kg

DRUGS (4)
  1. VITAMIN D [Concomitant]
     Active Substance: VITAMIN D NOS
  2. TURMERIC [Concomitant]
     Active Substance: HERBALS\TURMERIC
  3. ZINC. [Concomitant]
     Active Substance: ZINC
  4. FINASTERIDE. [Suspect]
     Active Substance: FINASTERIDE
     Indication: ALOPECIA
     Dosage: ?          QUANTITY:1 TABLET(S);?
     Route: 048
     Dates: start: 20200201, end: 20201226

REACTIONS (5)
  - Loss of consciousness [None]
  - Panic attack [None]
  - Dizziness [None]
  - Chest pain [None]
  - Suicidal ideation [None]

NARRATIVE: CASE EVENT DATE: 20201225
